FAERS Safety Report 10907720 (Version 1)
Quarter: 2015Q1

REPORT INFORMATION
  Report Type: Spontaneous
  Country: US (occurrence: US)
  Receive Date: 20150312
  Receipt Date: 20150312
  Transmission Date: 20150721
  Serious: Yes (Other)
  Sender: FDA-Public Use
  Company Number: US-INCYTE CORPORATION-2015IN000167

PATIENT
  Age: 74 Year
  Sex: Female

DRUGS (5)
  1. CENTRUM SILVER                     /02363801/ [Concomitant]
     Active Substance: VITAMINS
  2. GABAPENTIN. [Concomitant]
     Active Substance: GABAPENTIN
  3. JAKAFI [Suspect]
     Active Substance: RUXOLITINIB
     Dosage: 10 MG, BID
     Route: 048
     Dates: start: 20141221, end: 20150115
  4. LASIX [Concomitant]
     Active Substance: FUROSEMIDE
  5. ACIPHEX [Concomitant]
     Active Substance: RABEPRAZOLE SODIUM

REACTIONS (2)
  - Haemoglobin decreased [Unknown]
  - Headache [Unknown]

NARRATIVE: CASE EVENT DATE: 201412
